FAERS Safety Report 8205055-4 (Version None)
Quarter: 2012Q1

REPORT INFORMATION
  Report Type: 
  Country: None (occurrence: None)
  Receive Date: 20120313
  Receipt Date: 20120306
  Transmission Date: 20120608
  Serious: Yes (Other)
  Sender: FDA-Public Use
  Company Number: FR-UCBSA-041862

PATIENT
  Age: 31 Year
  Sex: Female

DRUGS (3)
  1. XYZAL [Suspect]
     Indication: ASTHMA
     Route: 048
     Dates: start: 20110916
  2. HOMEOPATHY [Concomitant]
  3. XYZAL [Suspect]
     Indication: NASOPHARYNGITIS
     Route: 048
     Dates: start: 20110916

REACTIONS (2)
  - MATERNAL EXPOSURE DURING PREGNANCY [None]
  - BREECH PRESENTATION [None]
